FAERS Safety Report 7599626-6 (Version None)
Quarter: 2011Q2

REPORT INFORMATION
  Report Type: 
  Country: None (occurrence: None)
  Receive Date: 20110622
  Receipt Date: 20110512
  Transmission Date: 20111010
  Serious: Yes (Death, Hospitalization)
  Sender: FDA-Public Use
  Company Number: LIT-008-11-IT

PATIENT

DRUGS (1)
  1. GENERIC -IG (IV) (HUMAN NORMAL IMMUNOGLOBULIN FOR INTRAVENOUS ADMINIST [Suspect]
     Indication: SYSTEMIC LUPUS ERYTHEMATOSUS
     Route: 042

REACTIONS (2)
  - CEREBRAL HAEMORRHAGE [None]
  - VASCULITIS CEREBRAL [None]
